FAERS Safety Report 6532320-9 (Version None)
Quarter: 2010Q1

REPORT INFORMATION
  Report Type: 
  Country: None (occurrence: None)
  Receive Date: 20100108
  Receipt Date: 20100104
  Transmission Date: 20100710
  Serious: Yes (Death)
  Sender: FDA-Public Use
  Company Number: US-CELGENEUS-163-20785-09111909

PATIENT
  Sex: Male

DRUGS (4)
  1. THALOMID [Suspect]
     Indication: MULTIPLE MYELOMA
     Route: 048
     Dates: start: 20091117, end: 20091120
  2. GLYBURIDE [Concomitant]
     Route: 065
  3. SYNTHROID [Concomitant]
     Indication: HYPOTHYROIDISM
     Route: 065
  4. ZOLOFT [Concomitant]
     Indication: DEPRESSION
     Route: 065

REACTIONS (1)
  - VENTRICULAR FIBRILLATION [None]
